FAERS Safety Report 19985829 (Version 3)
Quarter: 2022Q2

REPORT INFORMATION
  Report Type: Other
  Country: JP (occurrence: None)
  Receive Date: 20211022
  Receipt Date: 20220429
  Transmission Date: 20220721
  Serious: Yes (Life-Threatening, Hospitalization)
  Sender: FDA-Public Use
  Company Number: JP-ROCHE-2342933

PATIENT
  Age: 59 Year
  Sex: Female
  Weight: 56.5 kg

DRUGS (5)
  1. RITUXAN [Suspect]
     Active Substance: RITUXIMAB
     Indication: Immune thrombocytopenia
     Dosage: DATE OF TREATMENT: 03/AUG/2021, 10/AUG/2018 AND 17/AUG/2018
     Route: 041
     Dates: start: 20180727, end: 20180727
  2. PREDNISOLONE [Suspect]
     Active Substance: PREDNISOLONE
     Indication: Immune thrombocytopenia
     Route: 048
     Dates: start: 20190426
  3. ELTROMBOPAG OLAMINE [Concomitant]
     Active Substance: ELTROMBOPAG OLAMINE
     Indication: Immune thrombocytopenia
     Route: 048
     Dates: start: 20111222, end: 20190507
  4. CALONAL [Concomitant]
     Active Substance: ACETAMINOPHEN
     Indication: Premedication
     Dosage: DATE OF TREATMENT: 03/AUG/2021, 10/AUG/2018 AND 17/AUG/2018
     Route: 048
     Dates: start: 20180727, end: 20180727
  5. DIPHENHYDRAMINE [Concomitant]
     Active Substance: DIPHENHYDRAMINE
     Indication: Premedication
     Dosage: DATE OF TREATMENT: 03/AUG/2021, 10/AUG/2018 AND 17/AUG/2018
     Route: 048
     Dates: start: 20180727, end: 20180727

REACTIONS (3)
  - Bacteraemia [Unknown]
  - Bursitis infective [Recovered/Resolved]
  - Off label use [Unknown]

NARRATIVE: CASE EVENT DATE: 20180815
